FAERS Safety Report 23642544 (Version 1)
Quarter: 2024Q1

REPORT INFORMATION
  Report Type: Spontaneous
  Country: PL (occurrence: PL)
  Receive Date: 20240318
  Receipt Date: 20240318
  Transmission Date: 20240410
  Serious: Yes (Hospitalization)
  Sender: FDA-Public Use
  Company Number: None

PATIENT
  Age: 36 Year
  Sex: Female
  Weight: 64 kg

DRUGS (2)
  1. DOCETAXEL [Suspect]
     Active Substance: DOCETAXEL\DOCETAXEL ANHYDROUS
     Indication: Bone cancer
     Dosage: DOCETAXEL 0.08G/4ML, LOT: PX02777, EXP: 30/04/2021;?DOCETAXEL 0.02G/1ML LOT: Y11910, EXP: 31/05/2021
     Route: 042
     Dates: start: 20191223, end: 20191223
  2. GEMCITABINE [Suspect]
     Active Substance: GEMCITABINE
     Indication: Bone cancer
     Dosage: GEMCITABINE 1G/10ML
     Route: 042
     Dates: start: 20191223, end: 20191223

REACTIONS (2)
  - Neutropenia [Recovering/Resolving]
  - Thrombocytopenia [Recovering/Resolving]

NARRATIVE: CASE EVENT DATE: 20191231
